FAERS Safety Report 9221898 (Version 1)
Quarter: 2013Q1

REPORT INFORMATION
  Report Type: Spontaneous
  Country: US (occurrence: None)
  Receive Date: 20120913
  Receipt Date: 20120913
  Transmission Date: 20140127
  Serious: Yes (Hospitalization)
  Sender: FDA-Public Use
  Company Number: 134676

PATIENT
  Age: 50 Year
  Sex: Female

DRUGS (1)
  1. ETOPOSIDE [Suspect]
     Indication: NON-SMALL CELL LUNG CANCER STAGE III
     Route: 042
     Dates: start: 20120213, end: 20120316

REACTIONS (2)
  - Febrile neutropenia [None]
  - Oesophagitis [None]
